FAERS Safety Report 5594561-7 (Version None)
Quarter: 2008Q1

REPORT INFORMATION
  Report Type: 
  Country: None (occurrence: None)
  Receive Date: 20080117
  Receipt Date: 20080114
  Transmission Date: 20080703
  Serious: Yes (Other)
  Sender: FDA-Public Use
  Company Number: PR-BRISTOL-MYERS SQUIBB COMPANY-10941599

PATIENT
  Age: 20 Year
  Sex: Female

DRUGS (5)
  1. BMS232632 [Suspect]
     Indication: HIV INFECTION
     Dosage: STARTED 08 FEB 01,400 MG/DAY, INC. TO 1200 MG/DAY ON 23 MAY 01. THERAPY INTERRUPTED 11 JUL 01
     Route: 048
     Dates: start: 20010208
  2. ZERIT [Suspect]
     Indication: HIV INFECTION
     Route: 048
     Dates: start: 19991222
  3. EPIVIR [Suspect]
     Route: 048
     Dates: start: 19991222
  4. MULTI-VITAMIN [Concomitant]
  5. FOLIC ACID [Concomitant]

REACTIONS (3)
  - HYPERBILIRUBINAEMIA [None]
  - PERIPHERAL MOTOR NEUROPATHY [None]
  - PERIPHERAL SENSORY NEUROPATHY [None]
